FAERS Safety Report 8151015-1 (Version None)
Quarter: 2012Q1

REPORT INFORMATION
  Report Type: 
  Country: None (occurrence: None)
  Receive Date: 20120220
  Receipt Date: 20120213
  Transmission Date: 20120608
  Serious: Yes (Death, Hospitalization)
  Sender: FDA-Public Use
  Company Number: RO-BRISTOL-MYERS SQUIBB COMPANY-16368565

PATIENT
  Age: 32 Year
  Sex: Female

DRUGS (4)
  1. METAMIZOLE [Concomitant]
     Dosage: 1DF=1 VIAL
  2. ZOMETA [Concomitant]
  3. YERVOY [Suspect]
     Indication: MALIGNANT MELANOMA
     Route: 042
     Dates: start: 20120109, end: 20120109
  4. MORPHINE SULFATE [Concomitant]

REACTIONS (4)
  - NEOPLASM MALIGNANT [None]
  - DEHYDRATION [None]
  - HYPONATRAEMIA [None]
  - DIARRHOEA [None]
